FAERS Safety Report 24182518 (Version 1)
Quarter: 2024Q3

REPORT INFORMATION
  Report Type: Spontaneous
  Country: DE (occurrence: DE)
  Receive Date: 20240807
  Receipt Date: 20240807
  Transmission Date: 20241017
  Serious: Yes (Other)
  Sender: pharmaAND
  Company Number: DE-EMBRYOTOX-202305395

PATIENT
  Sex: Female
  Weight: 2.506 kg

DRUGS (8)
  1. PEGASYS [Suspect]
     Active Substance: PEGINTERFERON ALFA-2A
     Indication: Myeloproliferative neoplasm
     Dosage: 135 [?G/WK]
     Route: 064
     Dates: start: 20221030, end: 20230806
  2. PREDNISOLONE [Concomitant]
     Active Substance: PREDNISOLONE
     Indication: Habitual abortion
     Dosage: 2 [MG/D]
     Route: 064
     Dates: start: 20221222, end: 20230120
  3. PROPRANOLOL HYDROCHLORIDE [Concomitant]
     Active Substance: PROPRANOLOL HYDROCHLORIDE
     Indication: Tachycardia
     Dosage: 25 [MG/D]
     Route: 064
     Dates: start: 20221030, end: 20230120
  4. FERINJECT [Concomitant]
     Active Substance: FERRIC CARBOXYMALTOSE
     Indication: Iron deficiency
     Dosage: 1000 [MG/D]
     Route: 064
     Dates: start: 20230514, end: 20230514
  5. ASPIRIN [Concomitant]
     Active Substance: ASPIRIN
     Indication: Prophylaxis of abortion
     Dosage: 150 [MG/D (TO 100)]
     Route: 064
  6. INNOHEP [Concomitant]
     Active Substance: TINZAPARIN SODIUM
     Indication: Thrombosis prophylaxis
     Dosage: 4500 [I.E./D]
     Route: 064
     Dates: start: 20221219, end: 20230806
  7. PROGESTERONE [Concomitant]
     Active Substance: PROGESTERONE
     Indication: Habitual abortion
     Dosage: EXACT EXPOSURE TIMES NOT CLEAR
     Route: 064
     Dates: start: 20230120, end: 20230120
  8. PERTUSSIS VACCINE [Concomitant]
     Active Substance: PERTUSSIS VACCINE
     Indication: Immunisation
     Route: 064
     Dates: start: 20230526, end: 20230526

REACTIONS (2)
  - Small for dates baby [Recovering/Resolving]
  - Foetal exposure during pregnancy [Unknown]

NARRATIVE: CASE EVENT DATE: 20230801
